FAERS Safety Report 7291000-5 (Version None)
Quarter: 2011Q1

REPORT INFORMATION
  Report Type: 
  Country: None (occurrence: None)
  Receive Date: 20110214
  Receipt Date: 20110201
  Transmission Date: 20110831
  Serious: Yes (Hospitalization, Other)
  Sender: FDA-Public Use
  Company Number: CZ-NOVOPROD-322711

PATIENT
  Sex: Female
  Weight: 90 kg

DRUGS (3)
  1. LEVEMIR [Suspect]
     Indication: GESTATIONAL DIABETES
     Dosage: 16 UNK, UNK
     Dates: start: 20090301, end: 20090604
  2. METHYLDOPA [Concomitant]
     Indication: HYPERTENSION
     Dosage: 1 UNK, TID
     Route: 048
     Dates: start: 20090201, end: 20090604
  3. NOVORAPID [Suspect]
     Indication: GESTATIONAL DIABETES
     Dosage: 12 UNK, UNK
     Dates: start: 20090501, end: 20090604

REACTIONS (3)
  - ANAEMIA [None]
  - DRUG EXPOSURE DURING PREGNANCY [None]
  - PRE-ECLAMPSIA [None]
